FAERS Safety Report 12583782 (Version 3)
Quarter: 2016Q3

REPORT INFORMATION
  Report Type: Spontaneous
  Country: US (occurrence: US)
  Receive Date: 20160722
  Receipt Date: 20160805
  Transmission Date: 20161109
  Serious: Yes (Hospitalization, Other)
  Sender: FDA-Public Use
  Company Number: US-SAOL THERAPEUTICS-2016SAO00225

PATIENT
  Age: 44 Year
  Sex: Female

DRUGS (3)
  1. LIORESAL [Suspect]
     Active Substance: BACLOFEN
     Indication: MUSCLE SPASTICITY
     Dosage: 1600 ?G, \DAY
     Route: 037
     Dates: end: 20160721
  2. GABLOFEN [Suspect]
     Active Substance: BACLOFEN
     Dosage: 1640 ?G
  3. LIORESAL [Suspect]
     Active Substance: BACLOFEN
     Indication: MULTIPLE SCLEROSIS
     Dosage: 100 ?G, \DAY
     Route: 037
     Dates: start: 20160721

REACTIONS (4)
  - Seizure [Unknown]
  - Device occlusion [Unknown]
  - Muscle contracture [Unknown]
  - Tachycardia [Unknown]

NARRATIVE: CASE EVENT DATE: 20160707
